FAERS Safety Report 23271626 (Version 2)
Quarter: 2024Q1

REPORT INFORMATION
  Report Type: Spontaneous
  Country: US (occurrence: US)
  Receive Date: 20231207
  Receipt Date: 20240306
  Transmission Date: 20240410
  Serious: Yes (Other)
  Sender: FDA-Public Use
  Company Number: US-JNJFOC-20231216497

PATIENT
  Age: 74 Year
  Sex: Female

DRUGS (3)
  1. REMICADE [Suspect]
     Active Substance: INFLIXIMAB
     Indication: Product used for unknown indication
     Route: 041
  2. DECADRON [Suspect]
     Active Substance: DEXAMETHASONE
     Indication: Product used for unknown indication
     Route: 065
  3. COVID-19 VACCINE [Concomitant]
     Indication: COVID-19

REACTIONS (8)
  - Hip arthroplasty [Unknown]
  - Infection [Unknown]
  - COVID-19 [Unknown]
  - Chronic obstructive pulmonary disease [Not Recovered/Not Resolved]
  - Hypersensitivity [Unknown]
  - Abdominal discomfort [Unknown]
  - Palpitations [Unknown]
  - Insomnia [Unknown]
